FAERS Safety Report 7360625-0 (Version None)
Quarter: 2011Q1

REPORT INFORMATION
  Report Type: 
  Country: None (occurrence: None)
  Receive Date: 20110318
  Receipt Date: 20100927
  Transmission Date: 20110831
  Serious: Yes (Hospitalization, Other)
  Sender: FDA-Public Use
  Company Number: US-BAYER-200941580NA

PATIENT
  Sex: Female
  Weight: 54.422 kg

DRUGS (24)
  1. OXYCODONE HCL [Concomitant]
  2. ERRIN [Concomitant]
     Dosage: UNK
     Dates: start: 20050101, end: 20051101
  3. STEROID ANTIBACTERIALS [Concomitant]
  4. CRYSELLE [Concomitant]
     Dosage: UNK
     Dates: start: 20080126, end: 20080801
  5. ERRIN [Concomitant]
     Dosage: UNK
     Dates: start: 20030101
  6. BENTYL [Concomitant]
     Indication: ABDOMINAL PAIN
     Dosage: UNK
     Dates: end: 20080101
  7. ATIVAN [Concomitant]
  8. YASMIN [Suspect]
     Dosage: UNK
     Dates: start: 20070201, end: 20080107
  9. DRIHIST [Concomitant]
  10. ERRIN [Concomitant]
     Dosage: UNK
     Dates: start: 20060101, end: 20060201
  11. STEROID ANTIBACTERIALS [Concomitant]
     Indication: SUBARACHNOID HAEMORRHAGE
  12. OPTIVAR [Concomitant]
  13. AZITHROMYCIN [Concomitant]
  14. PSEUDOVENT [Concomitant]
  15. TRI-SPRINTEC [Concomitant]
     Dosage: UNK
     Dates: start: 20060501, end: 20060701
  16. PERCOCET [Concomitant]
     Dosage: UNK
     Dates: end: 20080101
  17. YASMIN [Suspect]
     Dosage: UNK UNK, UNK
     Route: 048
     Dates: start: 20060701, end: 20061201
  18. PREDNISOLONE [Concomitant]
     Dosage: UNK
     Dates: end: 20080101
  19. TOPAMAX [Concomitant]
  20. UNCODEABLE ^UNCLASSIFIABLE^ [Concomitant]
     Indication: SUBARACHNOID HAEMORRHAGE
  21. SODIUM SULFACETAMIDE [Concomitant]
  22. TRI-SPRINTEC [Concomitant]
     Dosage: UNK
     Dates: start: 20000101, end: 20100101
  23. AMOXICILLIN [Concomitant]
  24. ACETAMINOPHEN [Concomitant]

REACTIONS (6)
  - HEADACHE [None]
  - CEREBRAL THROMBOSIS [None]
  - BLINDNESS [None]
  - DEAFNESS [None]
  - SUBARACHNOID HAEMORRHAGE [None]
  - CEREBRAL HAEMORRHAGE [None]
